FAERS Safety Report 10625164 (Version 2)
Quarter: 2015Q4

REPORT INFORMATION
  Report Type: Spontaneous
  Country: US (occurrence: None)
  Receive Date: 20141202
  Receipt Date: 20151218
  Transmission Date: 20160304
  Serious: Yes (Hospitalization, Other)
  Sender: FDA-Public Use
  Company Number: ADR-2014-02258

PATIENT
  Age: 31 Year
  Sex: Female

DRUGS (2)
  1. LIORESAL [Suspect]
     Active Substance: BACLOFEN
     Indication: MUSCLE SPASTICITY
     Dosage: 25 MCG/DAY
  2. BACLOFEN ORAL [Suspect]
     Active Substance: BACLOFEN
     Dosage: 30 MG/DAY

REACTIONS (13)
  - Hypoaesthesia [None]
  - Muscle tightness [None]
  - Urinary incontinence [None]
  - Nuclear magnetic resonance imaging abnormal [None]
  - Neck pain [None]
  - Sensory loss [None]
  - Neuromyelitis optica [None]
  - Arthralgia [None]
  - Performance status decreased [None]
  - Condition aggravated [None]
  - Abasia [None]
  - Movement disorder [None]
  - Headache [None]
